FAERS Safety Report 10262074 (Version 1)
Quarter: 2014Q2

REPORT INFORMATION
  Report Type: Spontaneous
  Country: JP (occurrence: JP)
  Receive Date: 20140626
  Receipt Date: 20140626
  Transmission Date: 20141212
  Serious: Yes (Other)
  Sender: FDA-Public Use
  Company Number: JP-ROCHE-1423714

PATIENT
  Age: 62 Year
  Sex: Female
  Weight: 50 kg

DRUGS (9)
  1. AVASTIN [Suspect]
     Indication: PSEUDOMYXOMA PERITONEI
     Route: 041
  2. AVASTIN [Suspect]
     Indication: PSEUDOMYXOMA PERITONEI
     Route: 041
  3. ELPLAT [Concomitant]
     Indication: PSEUDOMYXOMA PERITONEI
     Route: 041
  4. 5-FU [Concomitant]
     Indication: PSEUDOMYXOMA PERITONEI
     Route: 040
  5. 5-FU [Concomitant]
     Indication: PSEUDOMYXOMA PERITONEI
     Route: 041
  6. 5-FU [Concomitant]
     Indication: PSEUDOMYXOMA PERITONEI
     Route: 040
  7. 5-FU [Concomitant]
     Indication: PSEUDOMYXOMA PERITONEI
     Route: 041
  8. CALCIUM LEVOFOLINATE [Concomitant]
     Indication: PSEUDOMYXOMA PERITONEI
     Route: 041
  9. CALCIUM LEVOFOLINATE [Concomitant]
     Indication: PSEUDOMYXOMA PERITONEI
     Route: 041

REACTIONS (2)
  - Metastases to peritoneum [Unknown]
  - Neuropathy peripheral [Unknown]
